FAERS Safety Report 11393681 (Version 2)
Quarter: 2015Q3

REPORT INFORMATION
  Report Type: Spontaneous
  Country: AU (occurrence: AU)
  Receive Date: 20150819
  Receipt Date: 20150918
  Transmission Date: 20151125
  Serious: Yes (Other)
  Sender: FDA-Public Use
  Company Number: AU-ROCHE-1622886

PATIENT
  Age: 34 Year
  Sex: Female

DRUGS (3)
  1. ALTEPLASE [Suspect]
     Active Substance: ALTEPLASE
     Dosage: AN RTPA INFUSION WAS SUBSEQUENTLY COMMENCED VIA THE LEFT INTERNAL JUGULAR CENTRAL VENOUS CATHETER AT
     Route: 050
  2. HEPARIN [Suspect]
     Active Substance: HEPARIN SODIUM
     Indication: PRODUCT USED FOR UNKNOWN INDICATION
     Route: 065
  3. ALTEPLASE [Suspect]
     Active Substance: ALTEPLASE
     Indication: PULMONARY EMBOLISM
     Dosage: 10 MG BOLUS WAS ADMINISTERED OVER 2 MINUTES VIA THE INTRAOSSEOUS NEEDLE WITHIN THE PATIENT^S LEFT PR
     Route: 028

REACTIONS (5)
  - Peritoneal haemorrhage [Recovered/Resolved]
  - Ischaemic hepatitis [Recovered/Resolved]
  - Disseminated intravascular coagulation [Recovered/Resolved]
  - Renal ischaemia [Recovered/Resolved]
  - Haemorrhage [Recovered/Resolved]
